FAERS Safety Report 20490647 (Version 1)
Quarter: 2022Q1

REPORT INFORMATION
  Report Type: Spontaneous
  Country: US (occurrence: US)
  Receive Date: 20220218
  Receipt Date: 20220218
  Transmission Date: 20220424
  Serious: No
  Sender: FDA-Public Use
  Company Number: US-PFIZER INC-202200106546

PATIENT
  Age: 70 Year
  Sex: Male

DRUGS (2)
  1. BRAFTOVI [Suspect]
     Active Substance: ENCORAFENIB
     Indication: Ear neoplasm malignant
     Dosage: 75 MG
  2. MEKTOVI [Suspect]
     Active Substance: BINIMETINIB
     Indication: Ear neoplasm malignant
     Dosage: 15 MG

REACTIONS (3)
  - Decreased activity [Unknown]
  - Feeling abnormal [Unknown]
  - Off label use [Unknown]
